FAERS Safety Report 13718313 (Version 3)
Quarter: 2017Q3

REPORT INFORMATION
  Report Type: Spontaneous
  Country: JP (occurrence: JP)
  Receive Date: 20170705
  Receipt Date: 20170724
  Transmission Date: 20171127
  Serious: Yes (Life-Threatening, Hospitalization, Other)
  Sender: FDA-Public Use
  Company Number: JP-PFIZER INC-2017282415

PATIENT
  Age: 83 Year
  Sex: Male
  Weight: 50.9 kg

DRUGS (10)
  1. LYRICA [Suspect]
     Active Substance: PREGABALIN
     Indication: SPONDYLOLISTHESIS
     Dosage: 75 MG, DAILY
     Route: 048
     Dates: start: 20161111
  2. LYRICA [Suspect]
     Active Substance: PREGABALIN
     Dosage: 50 MG, DAILY
     Route: 048
     Dates: start: 20161207
  3. DIOVAN [Concomitant]
     Active Substance: VALSARTAN
     Dosage: UNK
  4. LYRICA [Suspect]
     Active Substance: PREGABALIN
     Dosage: 25 MG, 2X/DAY
     Route: 048
     Dates: start: 20170412, end: 20170606
  5. LYRICA [Suspect]
     Active Substance: PREGABALIN
     Dosage: 25 MG, DAILY
     Route: 048
     Dates: start: 20170215
  6. OPALMON [Concomitant]
     Active Substance: LIMAPROST
     Dosage: UNK
  7. URINORM /00227201/ [Concomitant]
     Active Substance: BENZBROMARONE
     Dosage: UNK
  8. FLUITRAN [Concomitant]
     Active Substance: TRICHLORMETHIAZIDE
     Dosage: UNK
  9. LYRICA [Suspect]
     Active Substance: PREGABALIN
     Dosage: 25 MG, 1X/DAY
     Route: 048
     Dates: start: 201611, end: 20170411
  10. LYRICA [Suspect]
     Active Substance: PREGABALIN
     Dosage: 25 MG, 3X/DAY
     Route: 048
     Dates: start: 20170607, end: 20170628

REACTIONS (8)
  - Weight increased [Unknown]
  - Myopathy [Unknown]
  - Cardiac failure [Unknown]
  - Brain natriuretic peptide increased [Recovering/Resolving]
  - Peripheral swelling [Unknown]
  - Leiomyoma [Unknown]
  - Blood creatine phosphokinase increased [Recovering/Resolving]
  - Decreased appetite [Unknown]

NARRATIVE: CASE EVENT DATE: 201704
